FAERS Safety Report 19084902 (Version 1)
Quarter: 2021Q2

REPORT INFORMATION
  Report Type: Spontaneous
  Country: IT (occurrence: GR)
  Receive Date: 20210401
  Receipt Date: 20210401
  Transmission Date: 20210717
  Serious: Yes (Life-Threatening, Other)
  Sender: FDA-Public Use
  Company Number: NVSC2020IT157698

PATIENT
  Age: 16 Month
  Sex: Male

DRUGS (2)
  1. EXJADE [Suspect]
     Active Substance: DEFERASIROX
     Dosage: UNK
     Route: 065
     Dates: start: 20160405
  2. EXJADE [Suspect]
     Active Substance: DEFERASIROX
     Indication: HAEMOGLOBINOPATHY
     Dosage: 250 MG, QD
     Route: 048
     Dates: start: 20151130, end: 20160323

REACTIONS (2)
  - Product use issue [Unknown]
  - Hypertransaminasaemia [Recovered/Resolved]

NARRATIVE: CASE EVENT DATE: 20160323
